FAERS Safety Report 10178594 (Version 1)
Quarter: 2014Q2

REPORT INFORMATION
  Report Type: Spontaneous
  Country: US (occurrence: None)
  Receive Date: 20140516
  Receipt Date: 20140516
  Transmission Date: 20141212
  Serious: No
  Sender: FDA-Public Use
  Company Number: None

PATIENT
  Age: 45 Year
  Sex: Female
  Weight: 49.9 kg

DRUGS (1)
  1. LAMOTRIGINE 150MG TABLETS (ZYDUS) [Suspect]
     Indication: BIPOLAR DISORDER
     Dosage: 300MG, ONCE DAILY, TAKEN BY MOUTH
     Route: 048
     Dates: start: 20140101, end: 20140501

REACTIONS (1)
  - Alopecia [None]
